FAERS Safety Report 5019679-9 (Version None)
Quarter: 2006Q2

REPORT INFORMATION
  Report Type: 
  Country: None (occurrence: None)
  Receive Date: 20060601
  Receipt Date: 20060519
  Transmission Date: 20061013
  Serious: Yes (Other)
  Sender: FDA-Public Use
  Company Number: 2006022845

PATIENT
  Sex: Male

DRUGS (8)
  1. VIAGRA [Suspect]
     Indication: ERECTILE DYSFUNCTION
     Dosage: (50 MG, ORAL)
     Route: 048
     Dates: end: 20051117
  2. XALATAN [Concomitant]
  3. ATENOLOL [Concomitant]
  4. LIPITOR (ARTORVASTATIN) [Concomitant]
  5. ALTACE [Concomitant]
  6. ACETYLSALICYLIC ACID (ACETLYSALICYLIC ACID) [Concomitant]
  7. GLUCOSAMIDE (GLUCOSAMIDE) [Concomitant]
  8. FLONASE [Concomitant]

REACTIONS (4)
  - BLINDNESS UNILATERAL [None]
  - HEADACHE [None]
  - NASAL CONGESTION [None]
  - VISION BLURRED [None]
